FAERS Safety Report 25870681 (Version 2)
Quarter: 2025Q4

REPORT INFORMATION
  Report Type: Spontaneous
  Country: US (occurrence: US)
  Receive Date: 20251001
  Receipt Date: 20251027
  Transmission Date: 20260117
  Serious: No
  Sender: GILEAD
  Company Number: US-GILEAD-2025-0730562

PATIENT

DRUGS (2)
  1. YEZTUGO [Suspect]
     Active Substance: LENACAPAVIR SODIUM
     Indication: Prophylaxis against HIV infection
     Dosage: UNK (INJECTION) (2 INJECTIONS INTO THE STOMACH)
     Route: 058
  2. YEZTUGO [Suspect]
     Active Substance: LENACAPAVIR SODIUM
     Indication: Prophylaxis against HIV infection
     Dosage: UNK (TABLET) (2 DAYS OF PILLS)
     Route: 065

REACTIONS (3)
  - Injection site pain [Recovered/Resolved]
  - Injection site paraesthesia [Unknown]
  - Injection site mass [Recovering/Resolving]
